FAERS Safety Report 12931222 (Version 2)
Quarter: 2017Q1

REPORT INFORMATION
  Report Type: Spontaneous
  Country: US (occurrence: US)
  Receive Date: 20161110
  Receipt Date: 20170329
  Transmission Date: 20170428
  Serious: Yes (Other)
  Sender: FDA-Public Use
  Company Number: US-ELI_LILLY_AND_COMPANY-US201607006336

PATIENT
  Sex: Female

DRUGS (8)
  1. CYMBALTA [Suspect]
     Active Substance: DULOXETINE HYDROCHLORIDE
     Dosage: 90 MG, QD
     Route: 065
     Dates: start: 20081204
  2. CYMBALTA [Suspect]
     Active Substance: DULOXETINE HYDROCHLORIDE
     Dosage: 60 MG, QD
     Route: 065
     Dates: start: 20090910
  3. CYMBALTA [Suspect]
     Active Substance: DULOXETINE HYDROCHLORIDE
     Indication: MAJOR DEPRESSION
     Dosage: 60 MG, QD
     Route: 065
     Dates: start: 200803
  4. CYMBALTA [Suspect]
     Active Substance: DULOXETINE HYDROCHLORIDE
     Dosage: 60 MG, QD
     Route: 065
     Dates: start: 20090319
  5. CELEXA [Concomitant]
     Active Substance: CITALOPRAM HYDROBROMIDE
     Indication: DEPRESSION
     Dosage: 20 MG, QD
     Route: 065
  6. TRAZODONE [Concomitant]
     Active Substance: TRAZODONE HYDROCHLORIDE
     Indication: PRODUCT USED FOR UNKNOWN INDICATION
     Dosage: 50 MG,1/2-1 QHS
     Route: 065
  7. CELEXA [Concomitant]
     Active Substance: CITALOPRAM HYDROBROMIDE
     Indication: ANXIETY
  8. CYMBALTA [Suspect]
     Active Substance: DULOXETINE HYDROCHLORIDE
     Dosage: 90 MG, QD
     Route: 065
     Dates: start: 20090628

REACTIONS (23)
  - Drug withdrawal syndrome [Unknown]
  - Paraesthesia [Unknown]
  - Nausea [Unknown]
  - Hyperhidrosis [Unknown]
  - Anxiety [Unknown]
  - Seizure [Unknown]
  - Paranoia [Unknown]
  - Dysphoria [Unknown]
  - Irritability [Unknown]
  - Suicidal ideation [Unknown]
  - Diarrhoea [Unknown]
  - Confusional state [Unknown]
  - Sensory disturbance [Unknown]
  - Dizziness [Unknown]
  - Headache [Unknown]
  - Crying [Unknown]
  - Depressed mood [Unknown]
  - Affect lability [Unknown]
  - Fatigue [Unknown]
  - Tinnitus [Unknown]
  - Nightmare [Unknown]
  - Insomnia [Unknown]
  - Complex partial seizures [Unknown]
